FAERS Safety Report 6014402-3 (Version None)
Quarter: 2008Q4

REPORT INFORMATION
  Report Type: 
  Country: None (occurrence: None)
  Receive Date: 20081219
  Receipt Date: 20080822
  Transmission Date: 20090506
  Serious: No
  Sender: FDA-Public Use
  Company Number: A0730720A

PATIENT
  Sex: Male

DRUGS (1)
  1. AVODART [Suspect]
     Dosage: .5MG PER DAY
     Route: 048

REACTIONS (4)
  - CONDITION AGGRAVATED [None]
  - POLLAKIURIA [None]
  - PRODUCT QUALITY ISSUE [None]
  - PROSTATOMEGALY [None]
